FAERS Safety Report 8717894 (Version 2)
Quarter: 2015Q2

REPORT INFORMATION
  Report Type: Report from Study
  Country: US (occurrence: US)
  Receive Date: 20120810
  Receipt Date: 20150625
  Transmission Date: 20150821
  Serious: Yes (Hospitalization)
  Sender: FDA-Public Use
  Company Number: US-ROCHE-1098822

PATIENT
  Sex: Male

DRUGS (9)
  1. DOPAMINE [Concomitant]
     Active Substance: DOPAMINE\DOPAMINE HYDROCHLORIDE
     Route: 042
  2. ATROPINE [Concomitant]
     Active Substance: ATROPINE
     Route: 065
  3. ACTIVASE [Suspect]
     Active Substance: ALTEPLASE
     Indication: MYOCARDIAL INFARCTION
     Dosage: 100 MG
     Route: 065
  4. NITROGLYCERIN. [Concomitant]
     Active Substance: NITROGLYCERIN
     Dosage: 2 LITERS PER MINUTE AS NEEDED.
     Route: 060
  5. PERSANTINE [Concomitant]
     Active Substance: DIPYRIDAMOLE
     Route: 048
  6. ASPIRIN. [Concomitant]
     Active Substance: ASPIRIN
     Route: 048
  7. MORPHINE SULFATE. [Concomitant]
     Active Substance: MORPHINE SULFATE
  8. HEPARIN [Concomitant]
     Active Substance: HEPARIN SODIUM
     Route: 065
  9. LIDOCAINE. [Concomitant]
     Active Substance: LIDOCAINE

REACTIONS (3)
  - Blood creatine phosphokinase increased [Unknown]
  - Injury [Unknown]
  - Accelerated idioventricular rhythm [Unknown]
